FAERS Safety Report 21209449 (Version 1)
Quarter: 2022Q3

REPORT INFORMATION
  Report Type: Spontaneous
  Country: NL (occurrence: NL)
  Receive Date: 20220813
  Receipt Date: 20220813
  Transmission Date: 20221027
  Serious: Yes (Other)
  Sender: FDA-Public Use
  Company Number: NL-AMGEN-NLDSP2022135930

PATIENT

DRUGS (1)
  1. BEVACIZUMAB [Suspect]
     Active Substance: BEVACIZUMAB
     Indication: Tractional retinal detachment
     Dosage: UNK

REACTIONS (4)
  - Vitreous haemorrhage [Unknown]
  - Macular hole [Unknown]
  - Rhegmatogenous retinal detachment [Unknown]
  - Off label use [Unknown]
